FAERS Safety Report 4350867-0 (Version None)
Quarter: 2004Q2

REPORT INFORMATION
  Report Type: 
  Country: None (occurrence: None)
  Receive Date: 20040428
  Receipt Date: 20040419
  Transmission Date: 20050107
  Serious: Yes (Other)
  Sender: FDA-Public Use
  Company Number: 30019423-C606145-1

PATIENT
  Age: 12 Year
  Sex: Male
  Weight: 54 kg

DRUGS (10)
  1. EXTRANEAL [Suspect]
     Indication: PERITONEAL DIALYSIS
     Dosage: 7.5% ICODEXTRIN 2L QD IP
     Dates: start: 20040416, end: 20040419
  2. DIANEAL PD2 1.5% 6L X2/DA IP [Concomitant]
  3. DIANEAL 2.5% 6L X2/DAY IP [Concomitant]
  4. LIPITOR [Concomitant]
  5. MICRO-K 10 [Concomitant]
  6. ROCALTROL [Concomitant]
  7. OSCAL [Concomitant]
  8. GROWTH HORMONE [Concomitant]
  9. EPO [Concomitant]
  10. BLOOD PRESSURE MEDICATIONS [Concomitant]

REACTIONS (1)
  - PERITONITIS [None]
